FAERS Safety Report 9642542 (Version 1)
Quarter: 2013Q4

REPORT INFORMATION
  Report Type: Spontaneous
  Country: TR (occurrence: TR)
  Receive Date: 20131024
  Receipt Date: 20131024
  Transmission Date: 20140711
  Serious: Yes (Life-Threatening)
  Sender: FDA-Public Use
  Company Number: TR-MYLANLABS-2013S1023218

PATIENT
  Age: 34 Year
  Sex: Female

DRUGS (2)
  1. FUROSEMIDE [Suspect]
     Route: 042
  2. WARFARIN [Suspect]
     Indication: OVERDOSE
     Route: 065

REACTIONS (5)
  - Hypokalaemia [Recovering/Resolving]
  - Torsade de pointes [Recovered/Resolved]
  - Ventricular fibrillation [Recovered/Resolved]
  - Long QT syndrome congenital [Not Recovered/Not Resolved]
  - Overdose [Recovering/Resolving]
